FAERS Safety Report 7418058-4 (Version None)
Quarter: 2011Q2

REPORT INFORMATION
  Report Type: 
  Country: None (occurrence: None)
  Receive Date: 20110415
  Receipt Date: 20110405
  Transmission Date: 20111010
  Serious: No
  Sender: FDA-Public Use
  Company Number: SE-ROCHE-771078

PATIENT
  Age: 36 Year
  Sex: Female

DRUGS (3)
  1. ACCUTANE [Suspect]
     Route: 065
  2. ACCUTANE [Suspect]
     Indication: ACNE
     Route: 065
  3. ACCUTANE [Suspect]
     Route: 065

REACTIONS (2)
  - PREGNANCY [None]
  - NO ADVERSE EVENT [None]
